FAERS Safety Report 17806994 (Version 1)
Quarter: 2020Q2

REPORT INFORMATION
  Report Type: Spontaneous
  Country: CN (occurrence: CN)
  Receive Date: 20200520
  Receipt Date: 20200520
  Transmission Date: 20200714
  Serious: Yes (Other)
  Sender: FDA-Public Use
  Company Number: CN-QILU PHARMACEUTICAL CO.LTD.-QLU-000127-2020

PATIENT
  Age: 22 Year
  Sex: Male
  Weight: 74 kg

DRUGS (2)
  1. CEFAZOLIN [Suspect]
     Active Substance: CEFAZOLIN
     Indication: PROPHYLAXIS
     Dosage: 0.5 GRAM PER LITRE CEFAZOLIN INFUSION, WITH PRESSURE FOR NORMAL SALINE SET AT 30 MM HG
     Route: 042
  2. SEVOFLURANE. [Suspect]
     Active Substance: SEVOFLURANE
     Indication: GENERAL ANAESTHESIA
     Dosage: UNK
     Route: 065

REACTIONS (2)
  - Tonic convulsion [Recovered/Resolved]
  - Rash erythematous [Recovered/Resolved]
